FAERS Safety Report 15006311 (Version 1)
Quarter: 2018Q2

REPORT INFORMATION
  Report Type: Spontaneous
  Country: US (occurrence: US)
  Receive Date: 20180613
  Receipt Date: 20180613
  Transmission Date: 20180711
  Serious: No
  Sender: FDA-Public Use
  Company Number: US-GALDERMA-US18008858

PATIENT
  Age: 15 Year
  Sex: Female

DRUGS (17)
  1. PROACTIV SOLUTION DAILY PROTECTION PLUS SUNSCREEN SPF 30 [Suspect]
     Active Substance: AVOBENZONE\HOMOSALATE\OCTINOXATE\OCTISALATE\OXYBENZONE
     Indication: ACNE
     Route: 061
     Dates: start: 20180116, end: 20180118
  2. PROACTIV DEEP CLEANSING WASH [Concomitant]
     Active Substance: SALICYLIC ACID
     Indication: ACNE
     Route: 061
     Dates: start: 20180116, end: 20180118
  3. BENADRYL [Concomitant]
     Active Substance: DIPHENHYDRAMINE HYDROCHLORIDE
     Indication: SKIN BURNING SENSATION
  4. PROACTIV MD ADAPALENE ACNE TREATMENT [Suspect]
     Active Substance: ADAPALENE
     Indication: ACNE
     Dosage: 0.1%
     Route: 061
     Dates: start: 20180116, end: 20180118
  5. LIDOCAINE. [Concomitant]
     Active Substance: LIDOCAINE
     Indication: SKIN BURNING SENSATION
  6. CORTISONE [Concomitant]
     Active Substance: CORTISONE\HYDROCORTISONE
     Indication: SWELLING FACE
     Dates: start: 20180119
  7. PROACTIV SOLUTION BLACKHEAD DISSOLVING [Concomitant]
     Active Substance: SALICYLIC ACID
     Indication: ACNE
     Route: 061
     Dates: start: 20180116, end: 20180118
  8. TYLENOL [Concomitant]
     Active Substance: ACETAMINOPHEN
     Indication: SKIN EXFOLIATION
  9. PROACTIV MD DEEP CLEANSING FACE WASH [Concomitant]
     Active Substance: COSMETICS
     Indication: ACNE
     Route: 061
     Dates: start: 20180116, end: 20180118
  10. TYLENOL [Concomitant]
     Active Substance: ACETAMINOPHEN
     Indication: SWELLING FACE
     Dates: start: 20180119
  11. TYLENOL [Concomitant]
     Active Substance: ACETAMINOPHEN
     Indication: SKIN BURNING SENSATION
  12. LIDOCAINE. [Concomitant]
     Active Substance: LIDOCAINE
     Indication: SWELLING FACE
     Dates: start: 20180119
  13. CORTISONE [Concomitant]
     Active Substance: CORTISONE\HYDROCORTISONE
     Indication: SKIN EXFOLIATION
  14. BENADRYL [Concomitant]
     Active Substance: DIPHENHYDRAMINE HYDROCHLORIDE
     Indication: SWELLING FACE
     Dates: start: 20180119
  15. BENADRYL [Concomitant]
     Active Substance: DIPHENHYDRAMINE HYDROCHLORIDE
     Indication: SKIN EXFOLIATION
  16. CORTISONE [Concomitant]
     Active Substance: CORTISONE\HYDROCORTISONE
     Indication: SKIN BURNING SENSATION
  17. LIDOCAINE. [Concomitant]
     Active Substance: LIDOCAINE
     Indication: SKIN EXFOLIATION

REACTIONS (3)
  - Skin burning sensation [Not Recovered/Not Resolved]
  - Swelling face [Not Recovered/Not Resolved]
  - Skin exfoliation [Not Recovered/Not Resolved]

NARRATIVE: CASE EVENT DATE: 20180118
